FAERS Safety Report 25080786 (Version 1)
Quarter: 2025Q1

REPORT INFORMATION
  Report Type: Spontaneous
  Country: US (occurrence: US)
  Receive Date: 20250315
  Receipt Date: 20250315
  Transmission Date: 20250409
  Serious: Yes (Other)
  Sender: GLENMARK
  Company Number: US-GLENMARK PHARMACEUTICALS-2025GMK098500

PATIENT

DRUGS (1)
  1. ATOVAQUONE [Suspect]
     Active Substance: ATOVAQUONE
     Indication: Antifungal prophylaxis
     Dosage: 1500 MILLIGRAM, OD
     Route: 048

REACTIONS (1)
  - Disseminated toxoplasmosis [Unknown]
